FAERS Safety Report 5337953-3 (Version None)
Quarter: 2007Q2

REPORT INFORMATION
  Report Type: 
  Country: None (occurrence: None)
  Receive Date: 20070327
  Receipt Date: 20061206
  Transmission Date: 20071010
  Serious: No
  Sender: FDA-Public Use
  Company Number: 233520

PATIENT
  Age: 72 Year
  Sex: Female

DRUGS (1)
  1. AVASTIN [Suspect]
     Indication: OVARIAN CANCER RECURRENT
     Dosage: 300 MG, Q14D, INTRAVENOUS
     Route: 042

REACTIONS (1)
  - ACTINIC KERATOSIS [None]
